FAERS Safety Report 15157017 (Version 3)
Quarter: 2020Q2

REPORT INFORMATION
  Report Type: Report from Study
  Country: None (occurrence: US)
  Receive Date: 20180718
  Receipt Date: 20200420
  Transmission Date: 20200713
  Serious: Yes (Hospitalization, Other)
  Sender: FDA-Public Use
  Company Number: US-ABBVIE-18K-163-2418561-00

PATIENT
  Age: 47 Year
  Sex: Female

DRUGS (3)
  1. HUMIRA [Suspect]
     Active Substance: ADALIMUMAB
     Indication: CROHN^S DISEASE
     Route: 058
  2. HUMIRA [Suspect]
     Active Substance: ADALIMUMAB
     Indication: CROHN^S DISEASE
  3. HUMIRA [Suspect]
     Active Substance: ADALIMUMAB
     Indication: CROHN^S DISEASE
     Route: 058
     Dates: start: 201703

REACTIONS (16)
  - Haematochezia [Unknown]
  - Product administration error [Recovering/Resolving]
  - Lip injury [Recovered/Resolved]
  - Dizziness postural [Recovered/Resolved]
  - Fall [Recovered/Resolved]
  - Injection site pain [Recovered/Resolved]
  - Drug ineffective [Unknown]
  - Loss of consciousness [Recovered/Resolved]
  - Injection site haemorrhage [Recovered/Resolved]
  - Product storage error [Recovering/Resolving]
  - Anal fissure [Unknown]
  - Diarrhoea [Not Recovered/Not Resolved]
  - Pain [Unknown]
  - Colostomy [Unknown]
  - Crohn^s disease [Unknown]
  - Liquid product physical issue [Recovering/Resolving]

NARRATIVE: CASE EVENT DATE: 201703
